FAERS Safety Report 6501668 (Version 2)
Quarter: 2013Q1

REPORT INFORMATION
  Report Type: Spontaneous
  Country: CA (occurrence: CA)
  Receive Date: 20071214
  Receipt Date: 20130124
  Transmission Date: 20140127
  Serious: Yes (Hospitalization, Other)
  Sender: FDA-Public Use
  Company Number: CA-RANBAXY-2007US-11911

PATIENT
  Age: 22 Year
  Sex: Female

DRUGS (1)
  1. MINOCYCLINE HYDROCHLORIDE [Suspect]
     Indication: ACNE
     Dosage: UNK
     Route: 065

REACTIONS (2)
  - Serum sickness-like reaction [Recovered/Resolved]
  - Conjunctivitis [Recovered/Resolved]
